FAERS Safety Report 12100608 (Version 2)
Quarter: 2016Q1

REPORT INFORMATION
  Report Type: Report from Study
  Country: PL (occurrence: PL)
  Receive Date: 20160222
  Receipt Date: 20160331
  Transmission Date: 20160526
  Serious: Yes (Hospitalization)
  Sender: FDA-Public Use
  Company Number: PL-BIOGEN-2015BI090502

PATIENT
  Age: 34 Year
  Sex: Female
  Weight: 54.5 kg

DRUGS (5)
  1. AVONEX [Concomitant]
     Active Substance: INTERFERON BETA-1A
     Indication: MULTIPLE SCLEROSIS
     Route: 030
     Dates: start: 20140613
  2. KETONAL [Concomitant]
     Active Substance: KETOPROFEN
     Dates: start: 20150619, end: 20150619
  3. IBUPROM [Concomitant]
     Active Substance: IBUPROFEN
     Dates: start: 20140705
  4. DEXAVEN [Concomitant]
     Active Substance: DEXAMETHASONE
     Dates: start: 20150620, end: 20150620
  5. BIIB033 [Suspect]
     Active Substance: OPICINUMAB
     Indication: MULTIPLE SCLEROSIS
     Route: 042
     Dates: start: 20140613

REACTIONS (1)
  - Multiple sclerosis relapse [Recovered/Resolved]

NARRATIVE: CASE EVENT DATE: 20150624
